FAERS Safety Report 11362079 (Version 3)
Quarter: 2015Q3

REPORT INFORMATION
  Report Type: Spontaneous
  Country: JP (occurrence: JP)
  Receive Date: 20150810
  Receipt Date: 20150903
  Transmission Date: 20151125
  Serious: Yes (Death)
  Sender: FDA-Public Use
  Company Number: PHJP2015JP013694

PATIENT
  Sex: Male

DRUGS (1)
  1. ULTIBRO INHALATION CAPSULES [Suspect]
     Active Substance: GLYCOPYRRONIUM\INDACATEROL
     Indication: ASTHMA
     Dosage: UNK
     Route: 055

REACTIONS (5)
  - Asphyxia [Fatal]
  - Off label use [Unknown]
  - Cardio-respiratory arrest [Fatal]
  - Generalised tonic-clonic seizure [Fatal]
  - Dyspnoea [Fatal]
